FAERS Safety Report 22077626 (Version 1)
Quarter: 2023Q1

REPORT INFORMATION
  Report Type: Spontaneous
  Country: US (occurrence: US)
  Receive Date: 20230309
  Receipt Date: 20230309
  Transmission Date: 20230418
  Serious: No
  Sender: FDA-Public Use
  Company Number: US-AMGEN-USASP2023041643

PATIENT
  Age: 82 Year
  Sex: Female

DRUGS (3)
  1. MVASI [Suspect]
     Active Substance: BEVACIZUMAB-AWWB
     Indication: Tongue neoplasm malignant stage unspecified
     Dosage: 375 MILLIGRAM
     Route: 065
     Dates: start: 20210312
  2. MVASI [Suspect]
     Active Substance: BEVACIZUMAB-AWWB
     Indication: Ovarian cancer
  3. MVASI [Suspect]
     Active Substance: BEVACIZUMAB-AWWB
     Indication: Skin cancer

REACTIONS (1)
  - Hypertension [Unknown]

NARRATIVE: CASE EVENT DATE: 20230301
